FAERS Safety Report 11803373 (Version 1)
Quarter: 2015Q4

REPORT INFORMATION
  Report Type: Report from Study
  Country: IT (occurrence: IT)
  Receive Date: 20151204
  Receipt Date: 20151204
  Transmission Date: 20160305
  Serious: Yes (Death, Hospitalization, Other)
  Sender: FDA-Public Use
  Company Number: IT-ELI_LILLY_AND_COMPANY-IT201511004104

PATIENT
  Age: 67 Year
  Sex: Male
  Weight: 56 kg

DRUGS (5)
  1. RANITIDINE [Concomitant]
     Active Substance: RANITIDINE\RANITIDINE HYDROCHLORIDE
     Indication: GASTROINTESTINAL ULCER
     Dosage: UNK, UNKNOWN
     Route: 065
  2. PLASIL                             /00041901/ [Concomitant]
     Active Substance: METOCLOPRAMIDE
     Indication: PRODUCT USED FOR UNKNOWN INDICATION
     Dosage: UNK, UNKNOWN
     Route: 042
  3. BUSCOPAN [Concomitant]
     Active Substance: BUTYLSCOPOLAMINE BROMIDE
     Indication: PRODUCT USED FOR UNKNOWN INDICATION
     Dosage: UNK, UNKNOWN
     Route: 065
  4. SOLDESAM [Concomitant]
     Active Substance: DEXAMETHASONE
     Indication: PRODUCT USED FOR UNKNOWN INDICATION
     Dosage: 8 MG, UNKNOWN
     Route: 065
  5. CYRAMZA [Suspect]
     Active Substance: RAMUCIRUMAB
     Indication: ADENOCARCINOMA GASTRIC
     Dosage: 460 MG, CYCLICAL
     Route: 042
     Dates: start: 20150925, end: 20151012

REACTIONS (24)
  - Salivary hypersecretion [Unknown]
  - Dysphagia [Unknown]
  - Bacteraemia [Unknown]
  - Hypoxia [Unknown]
  - Transaminases increased [Unknown]
  - Gamma-glutamyltransferase increased [Unknown]
  - Blood alkaline phosphatase increased [Unknown]
  - Toxicity to various agents [Unknown]
  - Skin discolouration [Unknown]
  - Intestinal infarction [Fatal]
  - Intestinal perforation [Fatal]
  - Hepatic function abnormal [Unknown]
  - Bile duct obstruction [Unknown]
  - Gastrointestinal anastomotic complication [Unknown]
  - Blood glucose increased [Unknown]
  - Thrombocytopenia [Unknown]
  - Malignant neoplasm progression [Unknown]
  - Cough [Unknown]
  - Pulmonary embolism [Fatal]
  - Condition aggravated [Unknown]
  - Pleural effusion [Unknown]
  - Vomiting [Unknown]
  - Blood bilirubin increased [Unknown]
  - Anaemia [Unknown]

NARRATIVE: CASE EVENT DATE: 20151029
